FAERS Safety Report 7216096-8 (Version None)
Quarter: 2011Q1

REPORT INFORMATION
  Report Type: 
  Country: None (occurrence: None)
  Receive Date: 20110107
  Receipt Date: 20110105
  Transmission Date: 20110831
  Serious: Yes (Hospitalization, Other)
  Sender: FDA-Public Use
  Company Number: GB-AMGEN-GBRSP2010008288

PATIENT

DRUGS (6)
  1. CHEMOTHERAPEUTICS NOS [Concomitant]
     Dosage: UNK
     Dates: start: 20101130
  2. ONDASETRON                         /00955301/ [Concomitant]
     Dosage: 8 MG, UNK
     Route: 042
  3. DEXAMETHASONE [Concomitant]
     Dosage: 8 MG, UNK
     Route: 042
  4. DOXORUBICIN HCL [Concomitant]
     Dosage: 107 MG, Q2WK
     Route: 042
  5. NEULASTA [Suspect]
     Indication: CHEMOTHERAPY
     Dosage: 6 MG, AFTER CHEMO
     Route: 058
     Dates: start: 20101201
  6. CYCLOPHOSPHAMIDE [Concomitant]
     Dosage: 1068 MG, UNK
     Route: 042

REACTIONS (2)
  - PYREXIA [None]
  - NEUTROPENIA [None]
